FAERS Safety Report 15083598 (Version 1)
Quarter: 2018Q2

REPORT INFORMATION
  Report Type: Spontaneous
  Country: US (occurrence: US)
  Receive Date: 20180608
  Receipt Date: 20180608
  Transmission Date: 20180711
  Serious: Yes (Death, Other)
  Sender: FDA-Public Use
  Company Number: None

PATIENT
  Age: 64 Year
  Sex: Female

DRUGS (10)
  1. AFINITOR [Concomitant]
     Active Substance: EVEROLIMUS
  2. MEMANTINE. [Concomitant]
     Active Substance: MEMANTINE
  3. TORSEMIDE. [Concomitant]
     Active Substance: TORSEMIDE
  4. FERROUS SULFATE. [Concomitant]
     Active Substance: FERROUS SULFATE
  5. WARFARIN [Concomitant]
     Active Substance: WARFARIN
  6. SUTENT [Suspect]
     Active Substance: SUNITINIB MALATE
     Indication: PANCREATIC CARCINOMA
     Route: 048
     Dates: start: 20180515
  7. ZOLOFT [Concomitant]
     Active Substance: SERTRALINE HYDROCHLORIDE
  8. K-DUR [Concomitant]
     Active Substance: POTASSIUM CHLORIDE
  9. DONEPEZIL. [Concomitant]
     Active Substance: DONEPEZIL
  10. SPIRONILACTONE [Concomitant]

REACTIONS (1)
  - Diarrhoea [None]

NARRATIVE: CASE EVENT DATE: 20180515
